FAERS Safety Report 6983330-9 (Version None)
Quarter: 2010Q3

REPORT INFORMATION
  Report Type: 
  Country: None (occurrence: None)
  Receive Date: 20100914
  Receipt Date: 20100729
  Transmission Date: 20110219
  Serious: No
  Sender: FDA-Public Use
  Company Number: US-PFIZER INC-2010096320

PATIENT
  Sex: Male
  Weight: 87.075 kg

DRUGS (3)
  1. LYRICA [Suspect]
     Indication: ARTHRALGIA
     Dosage: 75 MG, 2X/DAY
     Route: 048
     Dates: start: 20100712, end: 20100701
  2. LYRICA [Suspect]
     Dosage: 100 MG, 2X/DAY
     Route: 048
     Dates: start: 20100701
  3. VALSARTAN [Concomitant]
     Indication: HYPERTENSION
     Dosage: UNK

REACTIONS (2)
  - COUGH [None]
  - SENSATION OF FOREIGN BODY [None]
